FAERS Safety Report 11732210 (Version 1)
Quarter: 2015Q4

REPORT INFORMATION
  Report Type: Spontaneous
  Country: US (occurrence: US)
  Receive Date: 20151110
  Receipt Date: 20151110
  Transmission Date: 20160304
  Serious: No
  Sender: FDA-Public Use
  Company Number: US-ELI_LILLY_AND_COMPANY-US201204001380

PATIENT
  Age: 60 Year
  Sex: Female

DRUGS (2)
  1. FORTEO [Suspect]
     Active Substance: TERIPARATIDE
     Indication: OSTEOPOROSIS
     Dosage: 20 UG, QD
     Dates: start: 20120301, end: 20120323
  2. FORTEO [Suspect]
     Active Substance: TERIPARATIDE
     Dosage: 20 UG, QD
     Dates: start: 20120329

REACTIONS (11)
  - Intervertebral disc disorder [Unknown]
  - Malaise [Not Recovered/Not Resolved]
  - Injection site bruising [Unknown]
  - Lethargy [Unknown]
  - Drug dose omission [Recovered/Resolved]
  - Fatigue [Unknown]
  - Osteoporosis [Unknown]
  - Drug dose omission [Recovered/Resolved]
  - Hot flush [Not Recovered/Not Resolved]
  - Arthropathy [Unknown]
  - Musculoskeletal disorder [Unknown]

NARRATIVE: CASE EVENT DATE: 201203
